FAERS Safety Report 20140588 (Version 1)
Quarter: 2021Q4

REPORT INFORMATION
  Report Type: Report from Study
  Country: BR (occurrence: BR)
  Receive Date: 20211202
  Receipt Date: 20211202
  Transmission Date: 20220303
  Serious: Yes (Other)
  Sender: FDA-Public Use
  Company Number: BR-NOVARTISPH-NVSC2021BR272151

PATIENT
  Age: 66 Year
  Sex: Female

DRUGS (4)
  1. RIBOCICLIB [Suspect]
     Active Substance: RIBOCICLIB
     Indication: Breast neoplasm
     Dosage: 600 MG, EVERY 28 DAYS
     Route: 048
  2. FULVESTRANT [Suspect]
     Active Substance: FULVESTRANT
     Indication: Breast neoplasm
     Dosage: 500 MG, EVERY 28 DAYS
     Route: 065
  3. PACLITAXEL [Suspect]
     Active Substance: PACLITAXEL
     Indication: Breast neoplasm
     Dosage: UNKNOWN
     Route: 065
     Dates: start: 201512
  4. ANASTROZOLE [Suspect]
     Active Substance: ANASTROZOLE
     Indication: Breast neoplasm
     Dosage: UNKNOWN
     Route: 065
     Dates: start: 20150701

REACTIONS (4)
  - Pleuroparenchymal fibroelastosis [Unknown]
  - Metastases to lymph nodes [Unknown]
  - Pulmonary mass [Unknown]
  - Paratracheal lymphadenopathy [Unknown]
